FAERS Safety Report 4962074-9 (Version None)
Quarter: 2006Q2

REPORT INFORMATION
  Report Type: 
  Country: None (occurrence: None)
  Receive Date: 20060404
  Receipt Date: 20051129
  Transmission Date: 20061013
  Serious: Yes (Hospitalization, Disabling)
  Sender: FDA-Public Use
  Company Number: US-MERCK-0511USA04490

PATIENT
  Sex: Female
  Weight: 125 kg

DRUGS (18)
  1. VIOXX [Suspect]
     Indication: ARTHRITIS
     Route: 048
     Dates: start: 20010307, end: 20030516
  2. HYDRODIURIL [Concomitant]
     Indication: HYPERTENSION
     Route: 048
     Dates: start: 19990101, end: 20050101
  3. PREMPRO [Concomitant]
     Indication: BONE DENSITY DECREASED
     Route: 065
     Dates: start: 19990801, end: 20030501
  4. COSOPT [Concomitant]
     Indication: GLAUCOMA
     Route: 065
  5. MECLIZINE [Concomitant]
     Route: 065
  6. AMOXICILLIN [Concomitant]
     Route: 065
  7. ZITHROMAX [Concomitant]
     Route: 065
  8. BECONASE [Concomitant]
     Route: 065
  9. PREVACID [Concomitant]
     Indication: DYSPEPSIA
     Route: 065
  10. PREVACID [Concomitant]
     Indication: GASTROOESOPHAGEAL REFLUX DISEASE
     Route: 065
  11. ALPHAGAN P [Concomitant]
     Indication: GLAUCOMA
     Route: 065
  12. CEPHALEXIN [Concomitant]
     Route: 065
  13. ALLEGRA [Concomitant]
     Route: 065
  14. SYNTHROID [Concomitant]
     Route: 065
  15. NEXIUM [Concomitant]
     Indication: DYSPEPSIA
     Route: 065
  16. NEXIUM [Concomitant]
     Indication: GASTROOESOPHAGEAL REFLUX DISEASE
     Route: 065
  17. ATENOL [Concomitant]
     Route: 065
     Dates: start: 20020601
  18. PROPOXYPHENE HYDROCHLORIDE [Concomitant]
     Route: 065
     Dates: start: 20011001

REACTIONS (6)
  - ARTHROPATHY [None]
  - CARDIAC MURMUR [None]
  - EMOTIONAL DISTRESS [None]
  - HYPERTENSION [None]
  - MENTAL DISORDER [None]
  - PULMONARY EMBOLISM [None]
